FAERS Safety Report 8592026-1 (Version None)
Quarter: 2012Q3

REPORT INFORMATION
  Report Type: 
  Country: None (occurrence: None)
  Receive Date: 20120814
  Receipt Date: 20120808
  Transmission Date: 20120928
  Serious: Yes (Other)
  Sender: FDA-Public Use
  Company Number: PHHY2012DE063496

PATIENT
  Age: 72 Year
  Sex: Male

DRUGS (1)
  1. RASILEZ [Suspect]
     Indication: HYPERTENSION
     Dosage: 1 DF, QD
     Dates: start: 20120101

REACTIONS (8)
  - TACHYCARDIA [None]
  - SUPRAVENTRICULAR EXTRASYSTOLES [None]
  - PALPITATIONS [None]
  - ARRHYTHMIA [None]
  - HYPERTENSIVE HEART DISEASE [None]
  - NIGHT SWEATS [None]
  - EXTRASYSTOLES [None]
  - HYPERHIDROSIS [None]
